FAERS Safety Report 16860538 (Version 1)
Quarter: 2019Q3

REPORT INFORMATION
  Report Type: Report from Study
  Country: JP (occurrence: JP)
  Receive Date: 20190927
  Receipt Date: 20190927
  Transmission Date: 20191005
  Serious: Yes (Other)
  Sender: FDA-Public Use
  Company Number: JP-ROCHE-2213238

PATIENT
  Age: 60 Year
  Sex: Male

DRUGS (5)
  1. TECENTRIQ [Suspect]
     Active Substance: ATEZOLIZUMAB
     Route: 041
     Dates: start: 20181203, end: 20190412
  2. TECENTRIQ [Suspect]
     Active Substance: ATEZOLIZUMAB
     Indication: LUNG ADENOCARCINOMA
     Route: 041
  3. TECENTRIQ [Suspect]
     Active Substance: ATEZOLIZUMAB
     Route: 041
     Dates: start: 20190510, end: 20190802
  4. TECENTRIQ [Suspect]
     Active Substance: ATEZOLIZUMAB
     Route: 041
     Dates: start: 20180820, end: 20180820
  5. TECENTRIQ [Suspect]
     Active Substance: ATEZOLIZUMAB
     Route: 041
     Dates: start: 20180921, end: 20181102

REACTIONS (5)
  - Dysgeusia [Not Recovered/Not Resolved]
  - Visual acuity reduced [Unknown]
  - Blood creatine phosphokinase increased [Recovered/Resolved]
  - Vision blurred [Unknown]
  - Asthenopia [Unknown]

NARRATIVE: CASE EVENT DATE: 20190816
